FAERS Safety Report 8536992-9 (Version None)
Quarter: 2012Q3

REPORT INFORMATION
  Report Type: 
  Country: None (occurrence: None)
  Receive Date: 20120713
  Receipt Date: 20120706
  Transmission Date: 20120928
  Serious: Yes (Life-Threatening, Hospitalization, Disabling)
  Sender: FDA-Public Use
  Company Number: DSA_57528_2012

PATIENT

DRUGS (2)
  1. XENAZINE [Suspect]
     Indication: HUNTINGTON'S DISEASE
     Dosage: (12.5 MG, BID ORAL), (12.5 MG TID ORAL)
     Route: 048
     Dates: start: 20120509
  2. XENAZINE [Suspect]
     Indication: HUNTINGTON'S DISEASE
     Dosage: (12.5 MG, BID ORAL), (12.5 MG TID ORAL)
     Route: 048
     Dates: start: 20120606, end: 20120618

REACTIONS (5)
  - HALLUCINATION [None]
  - FALL [None]
  - TIC [None]
  - DYSPHAGIA [None]
  - INTENTIONAL SELF-INJURY [None]
